FAERS Safety Report 9466223 (Version 3)
Quarter: 2014Q3

REPORT INFORMATION
  Report Type: Spontaneous
  Country: US (occurrence: US)
  Receive Date: 20130820
  Receipt Date: 20140918
  Transmission Date: 20150326
  Serious: Yes (Congenital Anomaly, Other)
  Sender: FDA-Public Use
  Company Number: US-PFIZER INC-2013238705

PATIENT
  Sex: Male
  Weight: 2.27 kg

DRUGS (13)
  1. IRON [Concomitant]
     Active Substance: IRON
     Dosage: UNK, DIALY
     Route: 064
  2. EFFEXOR [Suspect]
     Active Substance: VENLAFAXINE HYDROCHLORIDE
     Indication: DEPRESSION
     Dosage: 150 MG, 1X/DAY (AT BEDTIME)
     Route: 064
  3. EFFEXOR [Suspect]
     Active Substance: VENLAFAXINE HYDROCHLORIDE
     Dosage: UNK
     Route: 064
     Dates: start: 20051202, end: 20080513
  4. IBUPROFEN. [Concomitant]
     Active Substance: IBUPROFEN
     Indication: PYREXIA
     Dosage: 800 MG, 2X/DAY (AS NEEDED)
     Route: 064
     Dates: start: 20061127
  5. EFFEXOR XR [Concomitant]
     Active Substance: VENLAFAXINE HYDROCHLORIDE
     Dosage: 150 MG, 1X/DAY
     Route: 064
     Dates: start: 20051202
  6. ALPRAZOLAM. [Concomitant]
     Active Substance: ALPRAZOLAM
     Indication: DEPRESSION
     Dosage: UNK, DIALY
     Route: 064
  7. TYLENOL [Concomitant]
     Active Substance: ACETAMINOPHEN
     Dosage: 500 MG, AS NEEDED
     Route: 064
  8. HYDROCODONE [Concomitant]
     Active Substance: HYDROCODONE
     Dosage: UNK
     Route: 064
  9. PRENATAL VITAMINS [Concomitant]
     Active Substance: VITAMINS
     Dosage: UNK, DAILY
     Route: 064
  10. ORTHO EVRA [Concomitant]
     Active Substance: ETHINYL ESTRADIOL\NORELGESTROMIN
     Dosage: UNK
     Route: 064
  11. CEPHALEXIN. [Concomitant]
     Active Substance: CEPHALEXIN
     Dosage: 500 MG, 3X/DAY (AS NEEDED)
     Route: 064
     Dates: start: 20070222
  12. GLYBURIDE. [Concomitant]
     Active Substance: GLYBURIDE
     Dosage: 2.5 MG, 2X/DAY
     Route: 064
  13. METRONIDAZOLE. [Concomitant]
     Active Substance: METRONIDAZOLE
     Dosage: UNK
     Route: 064

REACTIONS (9)
  - Maternal exposure during pregnancy [Unknown]
  - Speech disorder [Unknown]
  - De Lange^s syndrome [Unknown]
  - Brachydactyly [Unknown]
  - Microcephaly [Unknown]
  - Skull malformation [Unknown]
  - Clinodactyly [Unknown]
  - Congenital anomaly [Unknown]
  - Developmental delay [Unknown]

NARRATIVE: CASE EVENT DATE: 20070624
